FAERS Safety Report 6427350-1 (Version None)
Quarter: 2009Q4

REPORT INFORMATION
  Report Type: 
  Country: None (occurrence: None)
  Receive Date: 20091104
  Receipt Date: 20091028
  Transmission Date: 20100525
  Serious: Yes (Other)
  Sender: FDA-Public Use
  Company Number: JP-PFIZER INC-2009261083

PATIENT
  Age: 80 Year
  Sex: Male

DRUGS (4)
  1. AMLODIPINE [Suspect]
     Dosage: UNK
     Route: 048
     Dates: start: 20080822
  2. PL GRAN. [Concomitant]
     Dosage: UNK
     Dates: start: 20080924, end: 20080929
  3. AMBROXOL [Concomitant]
     Dosage: UNK
     Dates: start: 20080924
  4. CARBOCISTEINE [Concomitant]
     Dosage: UNK
     Dates: start: 20081003

REACTIONS (1)
  - INSULIN AUTOIMMUNE SYNDROME [None]
